FAERS Safety Report 7291493-3 (Version None)
Quarter: 2011Q1

REPORT INFORMATION
  Report Type: 
  Country: None (occurrence: None)
  Receive Date: 20110214
  Receipt Date: 20110204
  Transmission Date: 20110831
  Serious: Yes (Hospitalization)
  Sender: FDA-Public Use
  Company Number: NL-MEDIMMUNE-MEDI-0012461

PATIENT
  Sex: Male
  Weight: 7.61 kg

DRUGS (2)
  1. SYNAGIS [Suspect]
     Route: 030
     Dates: start: 20110207, end: 20110207
  2. SYNAGIS [Suspect]
     Route: 030
     Dates: start: 20100920, end: 20110110

REACTIONS (4)
  - OXYGEN CONSUMPTION DECREASED [None]
  - RHINORRHOEA [None]
  - PYREXIA [None]
  - OEDEMA MUCOSAL [None]
